FAERS Safety Report 11059252 (Version 1)
Quarter: 2015Q2

REPORT INFORMATION
  Report Type: Spontaneous
  Country: US (occurrence: None)
  Receive Date: 20150420
  Receipt Date: 20150420
  Transmission Date: 20150821
  Serious: No
  Sender: FDA-Public Use
  Company Number: AEGR001232

PATIENT
  Age: 16 Year
  Sex: Male

DRUGS (3)
  1. JUXTAPID [Suspect]
     Active Substance: LOMITAPIDE MESYLATE
     Indication: PRODUCT USED FOR UNKNOWN INDICATION
     Route: 048
     Dates: start: 201305
  2. CRESTOR [Concomitant]
     Active Substance: ROSUVASTATIN CALCIUM
  3. ZETIA [Concomitant]
     Active Substance: EZETIMIBE

REACTIONS (6)
  - Drug administered to patient of inappropriate age [None]
  - Product used for unknown indication [None]
  - Influenza like illness [None]
  - Rhinorrhoea [None]
  - Nasal congestion [None]
  - Cough [None]

NARRATIVE: CASE EVENT DATE: 201305
